FAERS Safety Report 9628242 (Version 4)
Quarter: 2013Q4

REPORT INFORMATION
  Report Type: Report from Study
  Country: GR (occurrence: GR)
  Receive Date: 20131017
  Receipt Date: 20131209
  Transmission Date: 20140711
  Serious: Yes (Other)
  Sender: FDA-Public Use
  Company Number: GR-ROCHE-1288717

PATIENT
  Sex: Female
  Weight: 75 kg

DRUGS (1)
  1. ROACTEMRA [Suspect]
     Indication: RHEUMATOID ARTHRITIS
     Route: 042
     Dates: start: 2007

REACTIONS (4)
  - Spinal fracture [Unknown]
  - Fall [Unknown]
  - Hypertension [Unknown]
  - Pain [Unknown]
